FAERS Safety Report 8014549-6 (Version None)
Quarter: 2011Q4

REPORT INFORMATION
  Report Type: 
  Country: None (occurrence: None)
  Receive Date: 20111223
  Receipt Date: 20111216
  Transmission Date: 20120403
  Serious: Yes (Hospitalization)
  Sender: FDA-Public Use
  Company Number: TCI2011A06670

PATIENT
  Age: 69 Year
  Sex: Male

DRUGS (5)
  1. NU-LOTAN (LOSARTAN POTASSIUIM) [Concomitant]
  2. LIVALO [Concomitant]
  3. GLACTIVE (SITAGLIPTIN PHOSPHATE) [Concomitant]
  4. PLAVIX [Concomitant]
  5. ACTOS [Suspect]
     Indication: DIABETES MELLITUS
     Dosage: 15 MG (15 MG, 1 D)
     Route: 048
     Dates: start: 20060501

REACTIONS (1)
  - BLADDER CANCER [None]
